FAERS Safety Report 6765444-1 (Version None)
Quarter: 2010Q2

REPORT INFORMATION
  Report Type: 
  Country: None (occurrence: None)
  Receive Date: 20100609
  Receipt Date: 20100506
  Transmission Date: 20101027
  Serious: Yes (Other)
  Sender: FDA-Public Use
  Company Number: 2010012151

PATIENT
  Age: 1 Year
  Sex: Male
  Weight: 10.4 kg

DRUGS (5)
  1. CHILDREN'S ZYRTEC ALLERGY [Suspect]
     Indication: HYPERSENSITIVITY
     Dosage: ORAL
     Route: 048
  2. TYLENOL INFANTS DROPS (PARACETAMOL) [Suspect]
     Indication: TEETHING
     Dosage: ORAL
     Route: 048
  3. TYLENOL CHILDRENS (PARACETAMOL) [Suspect]
     Indication: TEETHING
     Dosage: ORAL
     Route: 048
  4. CHILDREN'S MOTRIN [Suspect]
     Indication: DRUG USE FOR UNKNOWN INDICATION
     Dosage: ORAL
     Route: 048
  5. CHILDREN'S MOTRIN [Suspect]
     Indication: DRUG USE FOR UNKNOWN INDICATION
     Dosage: ORAL
     Route: 048

REACTIONS (7)
  - CHILLS [None]
  - DIET REFUSAL [None]
  - INSOMNIA [None]
  - MALAISE [None]
  - PRODUCT CONTAMINATION MICROBIAL [None]
  - PRODUCT QUALITY ISSUE [None]
  - PYREXIA [None]
